FAERS Safety Report 4730217-8 (Version None)
Quarter: 2005Q3

REPORT INFORMATION
  Report Type: 
  Country: None (occurrence: None)
  Receive Date: 20050801
  Receipt Date: 20050722
  Transmission Date: 20060218
  Serious: Yes (Other)
  Sender: FDA-Public Use
  Company Number: US-GLAXOSMITHKLINE-A0567303A

PATIENT
  Age: 40 Year
  Sex: Male
  Weight: 77 kg

DRUGS (15)
  1. TUMS REGULAR TABLETS, ASSORTED FRUIT [Suspect]
     Dosage: 150TABD PER DAY
     Route: 048
     Dates: start: 20050601
  2. LORAZEPAM [Concomitant]
     Indication: VERTIGO
     Dosage: 1MG THREE TIMES PER DAY
     Route: 048
  3. CEPHALEXIN [Concomitant]
     Indication: DRUG USE FOR UNKNOWN INDICATION
     Dosage: 500MG TWICE PER DAY
     Route: 048
  4. HYDROCODONE BITARTRATE + ACETAMINOPHEN [Concomitant]
     Indication: PAIN
     Dosage: 7.5MG TWICE PER DAY
     Route: 048
  5. TRAZODONE HCL [Concomitant]
     Indication: SLEEP DISORDER
     Dosage: 50MG PER DAY
     Route: 048
  6. BENICAR [Concomitant]
     Indication: DRUG USE FOR UNKNOWN INDICATION
     Dosage: 40MG PER DAY
     Route: 048
  7. AMARYL [Concomitant]
     Dosage: 40MG PER DAY
     Route: 048
  8. DIALYSIS [Concomitant]
     Dates: start: 20050501
  9. LIPITOR [Concomitant]
     Dosage: 80MG PER DAY
     Route: 048
  10. FUROSEMIDE [Concomitant]
     Dosage: 40MG THREE TIMES PER DAY
     Route: 048
  11. WARFARIN SODIUM [Concomitant]
     Dosage: 3MG PER DAY
     Route: 048
  12. PROMETHAZINE [Concomitant]
     Indication: VERTIGO
     Dosage: 25MG THREE TIMES PER DAY
     Route: 048
  13. RENAGEL [Concomitant]
     Indication: DRUG USE FOR UNKNOWN INDICATION
     Dosage: 800MG TWICE PER DAY
     Route: 048
  14. RANIPLEX [Concomitant]
     Indication: RENAL DISORDER
  15. ASPIRIN [Concomitant]
     Indication: PROPHYLAXIS
     Dosage: 81MG PER DAY
     Route: 048

REACTIONS (3)
  - BLOOD CALCIUM INCREASED [None]
  - BLOOD PHOSPHORUS DECREASED [None]
  - DEPENDENCE [None]
